FAERS Safety Report 7803327-6 (Version None)
Quarter: 2011Q4

REPORT INFORMATION
  Report Type: 
  Country: None (occurrence: None)
  Receive Date: 20111007
  Receipt Date: 20111005
  Transmission Date: 20120403
  Serious: Yes (Death, Hospitalization)
  Sender: FDA-Public Use
  Company Number: US-AMGEN-USASP2011049270

PATIENT
  Sex: Male
  Weight: 71.655 kg

DRUGS (1)
  1. NPLATE [Suspect]
     Indication: IDIOPATHIC THROMBOCYTOPENIC PURPURA
     Dosage: 3 MUG/KG, QWK
     Route: 058
     Dates: start: 20110328, end: 20110516

REACTIONS (2)
  - PNEUMONIA [None]
  - DEMENTIA [None]
